FAERS Safety Report 7749232-5 (Version None)
Quarter: 2011Q3

REPORT INFORMATION
  Report Type: 
  Country: None (occurrence: None)
  Receive Date: 20110914
  Receipt Date: 20110830
  Transmission Date: 20111222
  Serious: No
  Sender: FDA-Public Use
  Company Number: US-B.I. PHARMACEUTICALS,INC./RIDGEFIELD-2011-BP-19158BP

PATIENT
  Sex: Male

DRUGS (11)
  1. PRADAXA [Suspect]
     Indication: ATRIAL FIBRILLATION
     Dosage: 300 MG
     Route: 048
     Dates: start: 20110801, end: 20110805
  2. ATENOLOL [Concomitant]
     Indication: ATRIAL FIBRILLATION
  3. DIGOXIN [Concomitant]
     Indication: ATRIAL FIBRILLATION
     Dosage: 0.25 MG
     Route: 048
  4. TYLENOL-500 [Concomitant]
     Indication: PAIN
     Route: 048
  5. LESCOL [Concomitant]
     Indication: BLOOD CHOLESTEROL INCREASED
     Dosage: 80 MG
     Route: 048
  6. AVODART [Concomitant]
     Indication: PROSTATE CANCER
     Route: 048
     Dates: start: 20080101
  7. MELOXICAM [Suspect]
     Indication: PROSTATIC DISORDER
     Dosage: 7.5 MG
     Route: 048
     Dates: start: 20110721
  8. ATENOLOL [Concomitant]
     Indication: HYPERTENSION
     Dosage: 100 MG
     Route: 048
  9. LEVOTHYROXINE SODIUM [Concomitant]
     Indication: HYPOTHYROIDISM
     Dosage: 0.15 MG
     Route: 048
  10. STOOL SOFTENER [Concomitant]
  11. ZETIA [Concomitant]
     Indication: BLOOD CHOLESTEROL INCREASED
     Dosage: 10 MG
     Route: 048

REACTIONS (3)
  - PENILE HAEMORRHAGE [None]
  - BLOOD URINE PRESENT [None]
  - HAEMORRHAGE [None]
